FAERS Safety Report 24208012 (Version 2)
Quarter: 2024Q3

REPORT INFORMATION
  Report Type: Report from Study
  Country: ZA (occurrence: ZA)
  Receive Date: 20240814
  Receipt Date: 20240912
  Transmission Date: 20241016
  Serious: Yes (Hospitalization, Other)
  Sender: NOVARTIS
  Company Number: ZA-002147023-NVSC2024ZA163231

PATIENT
  Age: 61 Year
  Sex: Female

DRUGS (3)
  1. OFATUMUMAB [Suspect]
     Active Substance: OFATUMUMAB
     Indication: Relapsing-remitting multiple sclerosis
     Dosage: 20 MG, QMO
     Route: 058
     Dates: start: 20240318
  2. OFATUMUMAB [Suspect]
     Active Substance: OFATUMUMAB
     Dosage: UNK
     Route: 065
     Dates: start: 202407
  3. OFATUMUMAB [Suspect]
     Active Substance: OFATUMUMAB
     Dosage: UNK
     Route: 065
     Dates: start: 20240909

REACTIONS (4)
  - Cystitis [Not Recovered/Not Resolved]
  - Lower respiratory tract infection [Not Recovered/Not Resolved]
  - Inflammation [Not Recovered/Not Resolved]
  - Infection [Recovering/Resolving]

NARRATIVE: CASE EVENT DATE: 20240701
